FAERS Safety Report 23453425 (Version 1)
Quarter: 2024Q1

REPORT INFORMATION
  Report Type: Spontaneous
  Country: NL (occurrence: NL)
  Receive Date: 20240129
  Receipt Date: 20240129
  Transmission Date: 20240410
  Serious: Yes (Death)
  Sender: FDA-Public Use
  Company Number: NL-AMGEN-NLDSP2023179174

PATIENT
  Sex: Female

DRUGS (7)
  1. ADALIMUMAB [Suspect]
     Active Substance: ADALIMUMAB\ISOPROPYL ALCOHOL
     Indication: Adenosine deaminase 2 deficiency
     Dosage: UNK
     Route: 065
  2. FILGRASTIM [Suspect]
     Active Substance: FILGRASTIM
     Indication: Adenosine deaminase 2 deficiency
     Dosage: UNK
     Route: 065
  3. CYCLOSPORINE [Concomitant]
     Active Substance: CYCLOSPORINE
     Indication: Product used for unknown indication
     Dosage: UNK
     Route: 065
  4. CYCLOPHOSPHAMIDE [Concomitant]
     Active Substance: CYCLOPHOSPHAMIDE
     Indication: Product used for unknown indication
     Dosage: UNK
     Route: 065
  5. INFLIXIMAB [Concomitant]
     Active Substance: INFLIXIMAB
     Indication: Adenosine deaminase 2 deficiency
     Dosage: UNK
     Route: 065
  6. METHOTREXATE [Concomitant]
     Active Substance: METHOTREXATE
     Indication: Adenosine deaminase 2 deficiency
     Dosage: ONLY 1 DOSE
     Route: 065
  7. SIROLIMUS [Concomitant]
     Active Substance: SIROLIMUS
     Indication: Adenosine deaminase 2 deficiency
     Dosage: UNK
     Route: 065

REACTIONS (4)
  - Non-small cell lung cancer [Fatal]
  - Infection [Unknown]
  - Drug ineffective for unapproved indication [Unknown]
  - Off label use [Unknown]
